FAERS Safety Report 4655623-1 (Version None)
Quarter: 2005Q2

REPORT INFORMATION
  Report Type: 
  Country: None (occurrence: None)
  Receive Date: 20050505
  Receipt Date: 20050420
  Transmission Date: 20051028
  Serious: Yes (Other)
  Sender: FDA-Public Use
  Company Number: USA050496132

PATIENT
  Sex: Female

DRUGS (2)
  1. HUMULIN N [Suspect]
     Dosage: 16 U/1 DAY
     Dates: start: 19890101
  2. PLAVIX [Concomitant]

REACTIONS (6)
  - ARTHROPATHY [None]
  - BLOOD GLUCOSE FLUCTUATION [None]
  - FEELING ABNORMAL [None]
  - INSOMNIA [None]
  - LIMB OPERATION [None]
  - PHARMACEUTICAL PRODUCT COMPLAINT [None]
